FAERS Safety Report 19114802 (Version 3)
Quarter: 2021Q3

REPORT INFORMATION
  Report Type: Report from Study
  Country: None (occurrence: US)
  Receive Date: 20210408
  Receipt Date: 20210901
  Transmission Date: 20211014
  Serious: Yes (Other)
  Sender: FDA-Public Use
  Company Number: US-ABBVIE-21K-163-3802407-00

PATIENT
  Age: 41 Year
  Sex: Male
  Weight: 74.87 kg

DRUGS (3)
  1. XOLAIR [Concomitant]
     Active Substance: OMALIZUMAB
     Indication: PRODUCT USED FOR UNKNOWN INDICATION
  2. HUMIRA [Suspect]
     Active Substance: ADALIMUMAB
     Indication: ANKYLOSING SPONDYLITIS
     Dosage: CITRATE FREE
     Route: 058
  3. PFIZER?BIONTECH COVID?19 VACCINE [Suspect]
     Active Substance: TOZINAMERAN
     Indication: COVID-19 IMMUNISATION
     Route: 030
     Dates: start: 20210304, end: 20210304

REACTIONS (7)
  - Allergic oedema [Recovering/Resolving]
  - Vertigo [Not Recovered/Not Resolved]
  - Rash [Unknown]
  - Hypertension [Recovering/Resolving]
  - Vaccination site swelling [Recovering/Resolving]
  - Peripheral swelling [Recovering/Resolving]
  - Deafness [Not Recovered/Not Resolved]

NARRATIVE: CASE EVENT DATE: 202103
